FAERS Safety Report 19991483 (Version 1)
Quarter: 2021Q4

REPORT INFORMATION
  Report Type: Spontaneous
  Country: US (occurrence: US)
  Receive Date: 20211025
  Receipt Date: 20211025
  Transmission Date: 20220303
  Serious: No
  Sender: FDA-Public Use
  Company Number: US-APPCO PHARMA LLC-2120953

PATIENT
  Age: 68 Year
  Sex: Female
  Weight: 90 kg

DRUGS (3)
  1. HYDROXYCHLOROQUINE SULFATE [Suspect]
     Active Substance: HYDROXYCHLOROQUINE SULFATE
     Indication: Rheumatoid arthritis
     Route: 065
     Dates: start: 20210916, end: 20210918
  2. ENBREL [Suspect]
     Active Substance: ETANERCEPT
     Route: 065
  3. PREDNISONE [Concomitant]
     Active Substance: PREDNISONE
     Route: 065

REACTIONS (3)
  - Oropharyngeal pain [Unknown]
  - Rash [Unknown]
  - Discontinued product administered [Unknown]

NARRATIVE: CASE EVENT DATE: 20210927
